FAERS Safety Report 8611578-6 (Version None)
Quarter: 2012Q3

REPORT INFORMATION
  Report Type: 
  Country: None (occurrence: None)
  Receive Date: 20120822
  Receipt Date: 20120817
  Transmission Date: 20120928
  Serious: Yes (Hospitalization, Other)
  Sender: FDA-Public Use
  Company Number: PHHY2009GB57407

PATIENT
  Sex: Male

DRUGS (10)
  1. CLOZARIL [Suspect]
     Dates: start: 20120718
  2. LEVOTHYROXINE SODIUM [Concomitant]
     Indication: HYPOTHYROIDISM
     Dosage: 225 UG, QD
  3. LAMOTRIGINE [Concomitant]
     Indication: EPILEPSY
     Dosage: 200 MG, UNK
     Route: 048
  4. VALPROATE SODIUM [Concomitant]
     Indication: EPILEPSY
     Dosage: 500 MG, BID
     Route: 048
  5. PROCYCLIDINE HYDROCHLORIDE 2MG TAB [Concomitant]
     Indication: HEADACHE
     Dosage: 5 MG, TID
     Route: 048
  6. KEPPRA [Concomitant]
     Indication: EPILEPSY
     Dosage: 750 MG, BID
  7. CLOZARIL [Suspect]
     Indication: SCHIZOPHRENIA
     Dosage: 300 MG, UNK
     Route: 048
     Dates: start: 20051201, end: 20100901
  8. AMISULPRIDE [Suspect]
     Indication: SCHIZOPHRENIA
     Dosage: 200 MG, UNK
     Route: 048
  9. CLOZARIL [Suspect]
     Dates: start: 20101110
  10. AMITRIPTYLINE HYDROCHLORIDE [Concomitant]
     Indication: HEADACHE
     Dosage: 20 MG, UNK
     Route: 048

REACTIONS (5)
  - SCHIZOPHRENIA [None]
  - WHITE BLOOD CELL COUNT INCREASED [None]
  - MONOCYTE COUNT INCREASED [None]
  - CHRONIC LYMPHOCYTIC LEUKAEMIA [None]
  - LYMPHOCYTE COUNT INCREASED [None]
